FAERS Safety Report 7370725-7 (Version None)
Quarter: 2011Q1

REPORT INFORMATION
  Report Type: 
  Country: None (occurrence: None)
  Receive Date: 20110323
  Receipt Date: 20110314
  Transmission Date: 20110831
  Serious: Yes (Hospitalization)
  Sender: FDA-Public Use
  Company Number: JP-BAYER-2011-023544

PATIENT
  Age: 86 Year
  Sex: Female

DRUGS (1)
  1. ASPIRIN [Suspect]
     Indication: CEREBRAL INFARCTION
     Dosage: 100 MG, QD
     Route: 048

REACTIONS (3)
  - EAR HAEMORRHAGE [None]
  - HAEMORRHAGE SUBCUTANEOUS [None]
  - MEDIASTINAL HAEMATOMA [None]
